FAERS Safety Report 21920667 (Version 2)
Quarter: 2023Q1

REPORT INFORMATION
  Report Type: Spontaneous
  Country: US (occurrence: US)
  Receive Date: 20230127
  Receipt Date: 20230321
  Transmission Date: 20230417
  Serious: No
  Sender: FDA-Public Use
  Company Number: US-BAYER-2023A009291

PATIENT
  Age: 85 Year
  Sex: Male

DRUGS (2)
  1. KERENDIA [Suspect]
     Active Substance: FINERENONE
     Dosage: 10 MG
     Dates: start: 20221123, end: 20221127
  2. KERENDIA [Suspect]
     Active Substance: FINERENONE
     Dosage: UNK
     Dates: start: 20230107, end: 20230110

REACTIONS (2)
  - Muscle spasms [Recovered/Resolved]
  - Myalgia [None]

NARRATIVE: CASE EVENT DATE: 20221125
